FAERS Safety Report 5627218-4 (Version None)
Quarter: 2008Q1

REPORT INFORMATION
  Report Type: 
  Country: None (occurrence: None)
  Receive Date: 20080215
  Receipt Date: 20080207
  Transmission Date: 20080703
  Serious: Yes (Hospitalization)
  Sender: FDA-Public Use
  Company Number: IE-BRISTOL-MYERS SQUIBB COMPANY-14036255

PATIENT
  Age: 72 Year
  Sex: Male

DRUGS (1)
  1. SINEMET [Suspect]
     Dosage: 1 DOSAGE FORM = 27+100MG; FORMULATION - TABS
     Route: 048
     Dates: start: 19990101

REACTIONS (4)
  - CIRCULATORY COLLAPSE [None]
  - DISEASE PROGRESSION [None]
  - DYSPHAGIA [None]
  - HAEMORRHAGE [None]
